FAERS Safety Report 4295758-9 (Version None)
Quarter: 2004Q1

REPORT INFORMATION
  Report Type: 
  Country: None (occurrence: None)
  Receive Date: 20040216
  Receipt Date: 20031029
  Transmission Date: 20041129
  Serious: No
  Sender: FDA-Public Use
  Company Number: US-GLAXOSMITHKLINE-A0432106A

PATIENT
  Age: 29 Year
  Sex: Female

DRUGS (11)
  1. LAMICTAL [Suspect]
     Indication: BIPOLAR DISORDER
     Route: 048
     Dates: start: 20020501
  2. WELLBUTRIN [Concomitant]
  3. ZOLOFT [Concomitant]
  4. CLONAZEPAM [Concomitant]
  5. METHADONE HCL [Concomitant]
  6. METHYLPHENIDATE HCL [Concomitant]
  7. LEVOXYL [Concomitant]
  8. INSULIN [Concomitant]
  9. ZANTAC [Concomitant]
  10. GLUCOTROL [Concomitant]
  11. LIPITOR [Concomitant]

REACTIONS (1)
  - RASH [None]
